FAERS Safety Report 18300342 (Version 1)
Quarter: 2020Q3

REPORT INFORMATION
  Report Type: Spontaneous
  Country: US (occurrence: US)
  Receive Date: 20200922
  Receipt Date: 20200922
  Transmission Date: 20201103
  Serious: Yes (Hospitalization, Disabling, Other)
  Sender: FDA-Public Use
  Company Number: None

PATIENT
  Age: 32 Year
  Sex: Female
  Weight: 92.25 kg

DRUGS (8)
  1. CALCIUM CITRATE [Concomitant]
     Active Substance: CALCIUM CITRATE
  2. JARDIANCE [Suspect]
     Active Substance: EMPAGLIFLOZIN
     Indication: BLOOD GLUCOSE INCREASED
     Dosage: ?          QUANTITY:180 TABLET(S);?
     Route: 048
     Dates: start: 20200717, end: 20200913
  3. LEVEMIR [Concomitant]
     Active Substance: INSULIN DETEMIR
  4. PROAIR HFA [Concomitant]
     Active Substance: ALBUTEROL SULFATE
  5. NOVOLOG [Concomitant]
     Active Substance: INSULIN ASPART
  6. ATORVASTATIN [Concomitant]
     Active Substance: ATORVASTATIN
  7. CALCITRIOL. [Concomitant]
     Active Substance: CALCITRIOL
  8. LEVOTHYROXINE. [Concomitant]
     Active Substance: LEVOTHYROXINE

REACTIONS (9)
  - Headache [None]
  - Heart rate increased [None]
  - Fall [None]
  - Head injury [None]
  - Asthenia [None]
  - Nausea [None]
  - Vomiting [None]
  - Dyspnoea [None]
  - Abdominal pain upper [None]

NARRATIVE: CASE EVENT DATE: 20200912
